FAERS Safety Report 8138488-5 (Version None)
Quarter: 2012Q1

REPORT INFORMATION
  Report Type: 
  Country: None (occurrence: None)
  Receive Date: 20120215
  Receipt Date: 20120209
  Transmission Date: 20120608
  Serious: Yes (Other)
  Sender: FDA-Public Use
  Company Number: JP-PFIZER INC-2012035238

PATIENT
  Age: 81 Year
  Sex: Male

DRUGS (2)
  1. ZITHROMAX [Suspect]
     Indication: INFECTION
     Dosage: UNK
     Route: 048
  2. FLOMOX [Concomitant]
     Indication: INFECTION
     Dosage: UNK

REACTIONS (1)
  - RHABDOMYOLYSIS [None]
